FAERS Safety Report 11672358 (Version 1)
Quarter: 2015Q4

REPORT INFORMATION
  Report Type: Spontaneous
  Country: US (occurrence: US)
  Receive Date: 20151027
  Receipt Date: 20151027
  Transmission Date: 20160304
  Serious: No
  Sender: FDA-Public Use
  Company Number: US-ELI_LILLY_AND_COMPANY-US201006005805

PATIENT
  Age: 74 Year
  Sex: Female

DRUGS (1)
  1. FORTEO [Suspect]
     Active Substance: TERIPARATIDE
     Indication: OSTEOPOROSIS
     Dosage: 20 UG, DAILY (1/D)
     Dates: start: 20100607

REACTIONS (15)
  - Somnolence [Unknown]
  - Feeling abnormal [Unknown]
  - Nervousness [Unknown]
  - Chills [Unknown]
  - Insomnia [Unknown]
  - Hypersomnia [Unknown]
  - Memory impairment [Unknown]
  - Hypophagia [Unknown]
  - Tremor [Unknown]
  - Dysgraphia [Unknown]
  - Asthenia [Unknown]
  - Disorientation [Unknown]
  - Sleep phase rhythm disturbance [Unknown]
  - Confusional state [Unknown]
  - Headache [Unknown]

NARRATIVE: CASE EVENT DATE: 20100618
